FAERS Safety Report 8066333-5 (Version None)
Quarter: 2012Q1

REPORT INFORMATION
  Report Type: 
  Country: None (occurrence: None)
  Receive Date: 20120124
  Receipt Date: 20120112
  Transmission Date: 20120608
  Serious: Yes (Death)
  Sender: FDA-Public Use
  Company Number: JP-ELI_LILLY_AND_COMPANY-JP201112006978

PATIENT
  Age: 85 Year
  Sex: Male

DRUGS (11)
  1. CLARITHROMYCIN [Concomitant]
     Dosage: 200 MG, UNK
     Route: 048
  2. BASEN [Concomitant]
     Dosage: 0.3 MG, TID
     Route: 048
  3. RHYTHMY [Concomitant]
     Dosage: 1 MG, UNK
     Route: 048
  4. TRANEXAMIC ACID [Concomitant]
     Dosage: 250 MG, TID
     Route: 048
     Dates: start: 20110922
  5. DIART [Concomitant]
     Dosage: 15 MG, UNK
     Route: 048
  6. LEVOTHYROXINE SODIUM [Concomitant]
     Dosage: 25 UG, QD
     Route: 048
  7. MUCOSOLVAN [Concomitant]
     Dosage: 15 MG, TID
     Route: 048
  8. ADONA [Concomitant]
     Dosage: 30 MG, TID
     Route: 048
     Dates: start: 20110922
  9. RABEPRAZOLE SODIUM [Concomitant]
     Dosage: 10 MG, UNK
     Route: 048
  10. FORTEO [Suspect]
     Dosage: 20 UG, UNK
     Route: 058
     Dates: start: 20111202
  11. MUCODYNE [Concomitant]
     Dosage: 250 MG, TID
     Route: 048

REACTIONS (1)
  - PNEUMONIA [None]
